FAERS Safety Report 23815074 (Version 1)
Quarter: 2024Q2

REPORT INFORMATION
  Report Type: Spontaneous
  Country: US (occurrence: None)
  Receive Date: 20240502
  Receipt Date: 20240502
  Transmission Date: 20240716
  Serious: No
  Sender: FDA-Public Use
  Company Number: None

PATIENT
  Age: 79 Year
  Sex: Male
  Weight: 90 kg

DRUGS (1)
  1. XTANDI [Suspect]
     Active Substance: ENZALUTAMIDE
     Indication: Prostate cancer
     Dosage: 30 TOT - TOTAL DAILY ORAL
     Route: 048
     Dates: start: 20230801

REACTIONS (2)
  - Fatigue [None]
  - Mood altered [None]

NARRATIVE: CASE EVENT DATE: 20240422
